FAERS Safety Report 5814159-2 (Version None)
Quarter: 2008Q3

REPORT INFORMATION
  Report Type: 
  Country: None (occurrence: None)
  Receive Date: 20080715
  Receipt Date: 20080702
  Transmission Date: 20090109
  Serious: Yes (Disabling, Other)
  Sender: FDA-Public Use
  Company Number: MEDI-0006778

PATIENT
  Age: 24 Month
  Sex: Male
  Weight: 10.4327 kg

DRUGS (19)
  1. SYNAGIS [Suspect]
     Indication: PREMATURE BABY
     Dosage: 100 MG, 1 IN 1 M, INTRAMUSCULAR
     Route: 030
     Dates: start: 20071119, end: 20080305
  2. SYNAGIS [Suspect]
     Indication: PREMATURE BABY
     Dosage: 100 MG, 1 IN 1 M, INTRAMUSCULAR
     Route: 030
     Dates: start: 20071119
  3. SYNAGIS [Suspect]
     Indication: PREMATURE BABY
     Dosage: 100 MG, 1 IN 1 M, INTRAMUSCULAR
     Route: 030
     Dates: start: 20071212
  4. SYNAGIS [Suspect]
     Indication: PREMATURE BABY
     Dosage: 100 MG, 1 IN 1 M, INTRAMUSCULAR
     Route: 030
     Dates: start: 20080109
  5. SYNAGIS [Suspect]
     Indication: PREMATURE BABY
     Dosage: 100 MG, 1 IN 1 M, INTRAMUSCULAR
     Route: 030
     Dates: start: 20080206
  6. SYNAGIS [Suspect]
  7. SYNAGIS [Suspect]
  8. SYNAGIS [Suspect]
  9. DTAP (DIPHTHERIA, TETANUS AND ACELLULAR PERTUSSIS) [Concomitant]
  10. DTAP-HBV-POL (HEPATITIS B VACCINE, DIPHTHERIA, TETANUS AND ACELLULAR P [Concomitant]
  11. HAV PED (HEPATITIS A VACCINE) [Concomitant]
  12. HAV PED/ADOL 2 DOSE SCH (HEPATITIS A VACCINE) [Concomitant]
  13. HIB PRP-OMP (HAEMOPHILUS INFLUENZAE B) [Concomitant]
  14. INFS PRES FREE 6-35M (INFLUENZA VIRUS VACCINE POLYVALENT) [Concomitant]
  15. MMR-VAR (MEASLES, MUMPS AND RUBELLA VACCINE) [Concomitant]
  16. PNU CN (PNEUMOCOCCAL VACCINE) [Concomitant]
  17. ACETAMINOPHEN [Concomitant]
  18. OXYGEN (OXYGEN) [Concomitant]
  19. DIURETICS [Concomitant]

REACTIONS (5)
  - APHASIA [None]
  - AUTISM SPECTRUM DISORDER [None]
  - FRAGILE X SYNDROME [None]
  - GRUNTING [None]
  - SPEECH DISORDER DEVELOPMENTAL [None]
